FAERS Safety Report 21610895 (Version 1)
Quarter: 2022Q4

REPORT INFORMATION
  Report Type: Spontaneous
  Country: ES (occurrence: ES)
  Receive Date: 20221117
  Receipt Date: 20221117
  Transmission Date: 20230113
  Serious: Yes (Hospitalization)
  Sender: FDA-Public Use
  Company Number: ES-TEVA-2022-ES-2826459

PATIENT

DRUGS (6)
  1. IBUPROFEN [Suspect]
     Active Substance: IBUPROFEN
     Indication: Suicide attempt
     Route: 065
  2. ALLOPURINOL [Suspect]
     Active Substance: ALLOPURINOL
     Indication: Suicide attempt
     Route: 065
  3. BISOPROLOL [Suspect]
     Active Substance: BISOPROLOL
     Indication: Suicide attempt
     Route: 065
  4. AMLODIPINE [Suspect]
     Active Substance: AMLODIPINE BESYLATE
     Indication: Suicide attempt
     Route: 065
  5. OLMESARTAN [Suspect]
     Active Substance: OLMESARTAN
     Indication: Suicide attempt
     Route: 065
  6. BROMAZEPAM [Suspect]
     Active Substance: BROMAZEPAM
     Indication: Suicide attempt
     Route: 065

REACTIONS (1)
  - Poisoning deliberate [Unknown]
